FAERS Safety Report 23240396 (Version 1)
Quarter: 2023Q4

REPORT INFORMATION
  Report Type: Spontaneous
  Country: NL (occurrence: NL)
  Receive Date: 20231129
  Receipt Date: 20231129
  Transmission Date: 20240109
  Serious: Yes (Other)
  Sender: FDA-Public Use
  Company Number: NL-LEO Pharma-365399

PATIENT
  Age: 80 Year
  Sex: Female

DRUGS (1)
  1. ADBRY [Suspect]
     Active Substance: TRALOKINUMAB-LDRM
     Indication: Dermatitis atopic
     Dosage: ^PATIENT HAS THEREFORE USED SEVERAL INJECTIONS, THOSE PACKAGING WERE GIVEN AT HOME, SO IT IS UNKNOWN
     Dates: start: 20230201, end: 20230830

REACTIONS (1)
  - Cutaneous T-cell lymphoma [Unknown]

NARRATIVE: CASE EVENT DATE: 20231102
